FAERS Safety Report 6094096-1 (Version None)
Quarter: 2009Q1

REPORT INFORMATION
  Report Type: 
  Country: None (occurrence: None)
  Receive Date: 20090224
  Receipt Date: 20090224
  Transmission Date: 20090719
  Serious: No
  Sender: FDA-Public Use
  Company Number: None

PATIENT
  Sex: Male
  Weight: 105 kg

DRUGS (3)
  1. XELODA [Suspect]
     Dosage: 12600 MG
  2. CAMPTOSAR [Suspect]
     Dosage: 168 MG
  3. ELOXATIN [Suspect]
     Dosage: 190 MG

REACTIONS (1)
  - NEUTROPENIA [None]
